FAERS Safety Report 8501476-0 (Version None)
Quarter: 2012Q3

REPORT INFORMATION
  Report Type: 
  Country: None (occurrence: None)
  Receive Date: 20120710
  Receipt Date: 20120629
  Transmission Date: 20120928
  Serious: Yes (Hospitalization)
  Sender: FDA-Public Use
  Company Number: US-NAPPMUNDI-GBR-2012-0010912

PATIENT
  Age: 54 Year
  Sex: Male

DRUGS (1)
  1. MORPHINE SULFATE [Suspect]
     Indication: LEUKOENCEPHALOPATHY
     Route: 065

REACTIONS (2)
  - LEUKOENCEPHALOPATHY [None]
  - ACCIDENTAL OVERDOSE [None]
